FAERS Safety Report 7922923 (Version 3)
Quarter: 2014Q2

REPORT INFORMATION
  Report Type: Spontaneous
  Country: US (occurrence: US)
  Receive Date: 20110429
  Receipt Date: 20140513
  Transmission Date: 20141212
  Serious: Yes (Hospitalization, Other)
  Sender: FDA-Public Use
  Company Number: US-ASTRAZENECA-2010SE19819

PATIENT
  Age: 69 Year
  Sex: Female
  Weight: 54.4 kg

DRUGS (2)
  1. NEXIUM [Suspect]
     Indication: GASTROOESOPHAGEAL REFLUX DISEASE
     Route: 048
     Dates: start: 2010, end: 20140430
  2. SYMBICORT [Suspect]
     Indication: CHRONIC OBSTRUCTIVE PULMONARY DISEASE
     Dosage: 160/4.5, UNKNOWN TID TO QID PRN
     Route: 055
     Dates: end: 201404

REACTIONS (13)
  - Renal failure [Unknown]
  - Coma [Recovered/Resolved]
  - Hypokinesia [Recovered/Resolved]
  - Dyspnoea [Unknown]
  - Abasia [Unknown]
  - Dyspnoea [Unknown]
  - Bronchitis [Unknown]
  - Multiple allergies [Unknown]
  - Nasopharyngitis [Unknown]
  - Abdominal pain upper [Unknown]
  - Malaise [Unknown]
  - Off label use [Unknown]
  - Intentional product misuse [Unknown]
